FAERS Safety Report 9210267 (Version 2)
Quarter: 2013Q2

REPORT INFORMATION
  Report Type: Report from Study
  Country: CA (occurrence: CA)
  Receive Date: 20130404
  Receipt Date: 20130417
  Transmission Date: 20140414
  Serious: Yes (Life-Threatening, Hospitalization, Other)
  Sender: FDA-Public Use
  Company Number: CA-ROCHE-1210150

PATIENT
  Age: 51 Year
  Sex: Male
  Weight: 81 kg

DRUGS (2)
  1. AVASTIN [Suspect]
     Indication: GLIOBLASTOMA
     Dosage: DOSE: 15 MG/KG
     Route: 042
     Dates: start: 20121120
  2. TEMOZOLOMIDE [Concomitant]
     Indication: GLIOBLASTOMA
     Dosage: DOSE: 150-200 MG
     Route: 048
     Dates: start: 201208

REACTIONS (2)
  - Pulmonary embolism [Recovered/Resolved]
  - Convulsion [Unknown]
